FAERS Safety Report 9274810 (Version 1)
Quarter: 2013Q2

REPORT INFORMATION
  Report Type: Spontaneous
  Country: US (occurrence: None)
  Receive Date: 20130501
  Receipt Date: 20130501
  Transmission Date: 20140414
  Serious: Yes (Other)
  Sender: FDA-Public Use
  Company Number: None

PATIENT
  Sex: 0

DRUGS (3)
  1. MOXEZA 0.5% ALCON [Suspect]
     Indication: CATARACT OPERATION
     Dosage: ONCE  INTRAOCULAR
     Route: 031
     Dates: start: 20130320, end: 20130320
  2. MOXEZA 0.5% ALCON [Suspect]
     Indication: INTRAOCULAR LENS IMPLANT
     Dosage: ONCE  INTRAOCULAR
     Route: 031
     Dates: start: 20130320, end: 20130320
  3. BSS [Suspect]
     Dosage: INTRAOCULAR
     Route: 031
     Dates: start: 20130320, end: 20130320

REACTIONS (3)
  - Toxic anterior segment syndrome [None]
  - Reaction to drug excipients [None]
  - Product substitution issue [None]
